FAERS Safety Report 16016743 (Version 1)
Quarter: 2019Q1

REPORT INFORMATION
  Report Type: Spontaneous
  Country: US (occurrence: US)
  Receive Date: 20190131
  Receipt Date: 20190131
  Transmission Date: 20190418
  Serious: No
  Sender: FDA-Public Use
  Company Number: None

PATIENT
  Age: 14 Year
  Sex: Female

DRUGS (1)
  1. SPRYCEL [Suspect]
     Active Substance: DASATINIB
     Dates: start: 2018, end: 20181120

REACTIONS (2)
  - Therapy cessation [None]
  - Bone marrow transplant [None]

NARRATIVE: CASE EVENT DATE: 20190131
